FAERS Safety Report 6235229-3 (Version None)
Quarter: 2009Q2

REPORT INFORMATION
  Report Type: 
  Country: None (occurrence: None)
  Receive Date: 20090618
  Receipt Date: 20090612
  Transmission Date: 20091009
  Serious: Yes (Death, Hospitalization)
  Sender: FDA-Public Use
  Company Number: US-AMGEN-US350216

PATIENT
  Sex: Female
  Weight: 79.9 kg

DRUGS (13)
  1. NPLATE [Suspect]
     Indication: IDIOPATHIC THROMBOCYTOPENIC PURPURA
     Route: 058
     Dates: start: 20090423, end: 20090430
  2. DECADRON [Concomitant]
  3. INSULIN [Concomitant]
     Dates: start: 20060101
  4. METFORMIN HCL [Concomitant]
     Dates: start: 20060101
  5. GEMFIBROZIL [Concomitant]
     Dates: start: 20060101
  6. LEVOXYL [Concomitant]
     Dates: start: 19970101
  7. QUINAPRIL [Concomitant]
     Dates: start: 19980101
  8. PRILOSEC [Concomitant]
     Dates: start: 19980101
  9. DETROL [Concomitant]
     Dates: start: 19980101
  10. LIPITOR [Concomitant]
     Dates: start: 19980101
  11. PAXIL [Concomitant]
     Dates: start: 19970101
  12. SALAGEN [Concomitant]
     Dates: start: 19980101
  13. ACARBOSE [Concomitant]
     Dates: start: 20060101

REACTIONS (1)
  - HAEMORRHAGE INTRACRANIAL [None]
